FAERS Safety Report 9406779 (Version 1)
Quarter: 2013Q3

REPORT INFORMATION
  Report Type: Spontaneous
  Country: US (occurrence: US)
  Receive Date: 20130718
  Receipt Date: 20130718
  Transmission Date: 20140515
  Serious: No
  Sender: FDA-Public Use
  Company Number: US-BIOGENIDEC-2013BI065450

PATIENT
  Sex: Male

DRUGS (1)
  1. TYSABRI [Suspect]
     Indication: CROHN^S DISEASE
     Route: 042

REACTIONS (4)
  - Hypoaesthesia [Recovered/Resolved]
  - Pica [Recovered/Resolved]
  - Headache [Recovered/Resolved]
  - Dyspnoea [Recovered/Resolved]
